FAERS Safety Report 10245722 (Version 1)
Quarter: 2014Q2

REPORT INFORMATION
  Report Type: Spontaneous
  Country: IE (occurrence: IE)
  Receive Date: 20140619
  Receipt Date: 20140619
  Transmission Date: 20141212
  Serious: Yes (Death)
  Sender: FDA-Public Use
  Company Number: IE-AMGEN INC.-IRLSP2014044952

PATIENT
  Age: 91 Year
  Sex: Female

DRUGS (5)
  1. ARANESP [Suspect]
     Indication: CHRONIC MYELOID LEUKAEMIA
     Dosage: 500 MG, (TWO INJECTION EVERY THREE WEEKS)
     Route: 058
     Dates: start: 20120123
  2. IXPRIM [Concomitant]
  3. CALTRATE                           /00944201/ [Concomitant]
  4. ZIMOVANE [Concomitant]
  5. NITROFURANTOIN [Concomitant]

REACTIONS (1)
  - Death [Fatal]
